FAERS Safety Report 5236451-5 (Version None)
Quarter: 2007Q1

REPORT INFORMATION
  Report Type: 
  Country: None (occurrence: None)
  Receive Date: 20070208
  Receipt Date: 20070125
  Transmission Date: 20070707
  Serious: Yes (Hospitalization)
  Sender: FDA-Public Use
  Company Number: 235990

PATIENT
  Sex: Female

DRUGS (3)
  1. HERCEPTIN [Suspect]
     Indication: BREAST CANCER METASTATIC
     Dosage: 6 MG, Q3W
  2. GINKGO (GINKGO BILOBA) [Concomitant]
  3. HETASTARCH IN SODIUM CHLORIDE [Concomitant]

REACTIONS (2)
  - DEAFNESS [None]
  - SUBDURAL HAEMATOMA [None]
